FAERS Safety Report 5296247-5 (Version None)
Quarter: 2007Q2

REPORT INFORMATION
  Report Type: 
  Country: None (occurrence: None)
  Receive Date: 20070406
  Receipt Date: 20070330
  Transmission Date: 20071010
  Serious: Yes (Hospitalization)
  Sender: FDA-Public Use
  Company Number: GXKR2006GB00851

PATIENT
  Age: 54 Year
  Sex: Female

DRUGS (2)
  1. CITALOPRAM HYDROBROMIDE [Suspect]
     Dosage: 14-30 TABLETS OVERDOSE, ORAL
     Route: 048
     Dates: start: 20020601
  2. P-REMPAK-C (ESTROGENS CONJUGATED, LEVONORGESTREL) [Concomitant]

REACTIONS (7)
  - ANGLE CLOSURE GLAUCOMA [None]
  - BLOOD ALCOHOL INCREASED [None]
  - CORNEAL OEDEMA [None]
  - DRUG TOXICITY [None]
  - INTENTIONAL OVERDOSE [None]
  - PUPIL FIXED [None]
  - RETINAL HAEMORRHAGE [None]
